FAERS Safety Report 14534539 (Version 1)
Quarter: 2018Q1

REPORT INFORMATION
  Report Type: Spontaneous
  Country: US (occurrence: US)
  Receive Date: 20180215
  Receipt Date: 20180215
  Transmission Date: 20180509
  Serious: No
  Sender: FDA-Public Use
  Company Number: US-GLAXOSMITHKLINE-US2018020229

PATIENT
  Age: 75 Year
  Sex: Female

DRUGS (1)
  1. ABREVA [Suspect]
     Active Substance: DOCOSANOL
     Indication: ORAL HERPES
     Dosage: UNK (3 OR 4 TIMES A DAY)
     Route: 061
     Dates: start: 20180126, end: 20180205

REACTIONS (4)
  - Oral herpes [Unknown]
  - Condition aggravated [Unknown]
  - Incorrect drug administration duration [Unknown]
  - Inappropriate schedule of drug administration [Unknown]
